FAERS Safety Report 16274262 (Version 3)
Quarter: 2019Q3

REPORT INFORMATION
  Report Type: Spontaneous
  Country: ES (occurrence: ES)
  Receive Date: 20190504
  Receipt Date: 20190921
  Transmission Date: 20191004
  Serious: Yes (Hospitalization, Other)
  Sender: FDA-Public Use
  Company Number: ES-AUROBINDO-AUR-APL-2019-024169

PATIENT
  Age: 50 Year
  Sex: Male

DRUGS (10)
  1. LACOSAMIDE. [Suspect]
     Active Substance: LACOSAMIDE
     Dosage: UNK (RESTARTED DOSE)
     Route: 065
  2. VALPROIC ACID. [Suspect]
     Active Substance: VALPROIC ACID
     Indication: SEIZURE
     Dosage: 1500 MILLIGRAM, ONCE A DAY
     Route: 065
  3. LACOSAMIDE. [Suspect]
     Active Substance: LACOSAMIDE
     Indication: PARTIAL SEIZURES
     Dosage: 100 MILLIGRAM, ONCE A DAY (50 MG, 2X/DAY (BID))
     Route: 065
  4. PHENYTOIN SODIUM. [Suspect]
     Active Substance: PHENYTOIN SODIUM
     Indication: SEIZURE
     Dosage: 1 GRAM, LOADING DOSE
     Route: 042
  5. PHENYTOIN SODIUM. [Suspect]
     Active Substance: PHENYTOIN SODIUM
     Dosage: 250 MILLIGRAM, ONCE A DAY, MAINTAINACE DOSE
     Route: 048
  6. LEVETIRACETAM CONCENTRATE FOR SOLUTION FOR INFUSION [Suspect]
     Active Substance: LEVETIRACETAM
     Indication: PARTIAL SEIZURES
  7. LACOSAMIDE. [Suspect]
     Active Substance: LACOSAMIDE
     Dosage: 50 MILLIGRAM, ONCE A DAY
     Route: 065
  8. LEVETIRACETAM CONCENTRATE FOR SOLUTION FOR INFUSION [Suspect]
     Active Substance: LEVETIRACETAM
     Indication: PARTIAL SEIZURES
     Dosage: 1 GRAM, (1 G, (2 INTRAVENOUS LOADING DOSES OF 1 G))
     Route: 042
     Dates: start: 201702
  9. LACOSAMIDE. [Suspect]
     Active Substance: LACOSAMIDE
     Dosage: 200 MILLIGRAM, ONCE A DAY (100 MG, 2X/DAY (BID))
     Route: 048
  10. CLOBAZAM. [Concomitant]
     Active Substance: CLOBAZAM
     Indication: SEIZURE
     Dosage: 20 MILLIGRAM, ONCE A DAY (10 MG, 2X/DAY (BID))
     Route: 065

REACTIONS (7)
  - Drug reaction with eosinophilia and systemic symptoms [Unknown]
  - Rash [Unknown]
  - Leukopenia [Unknown]
  - Eosinophilia [Unknown]
  - Pyrexia [Unknown]
  - Diplopia [Unknown]
  - Seizure [Unknown]

NARRATIVE: CASE EVENT DATE: 201801
